FAERS Safety Report 6377176-2 (Version None)
Quarter: 2009Q3

REPORT INFORMATION
  Report Type: 
  Country: None (occurrence: None)
  Receive Date: 20090921
  Receipt Date: 20090908
  Transmission Date: 20100115
  Serious: Yes (Hospitalization)
  Sender: FDA-Public Use
  Company Number: 1000008748

PATIENT
  Age: 28 Year
  Sex: Male

DRUGS (3)
  1. CARBAMAZEPINE [Suspect]
  2. HALOPERIDOL [Suspect]
     Indication: PSYCHOTIC DISORDER
     Dosage: 7 DAYS AFTER SURGERY
  3. PHENOTHIAZINES [Suspect]
     Indication: PSYCHOTIC DISORDER
     Dosage: 7 DAYS AFTER SURGERY

REACTIONS (2)
  - INTUSSUSCEPTION [None]
  - LYMPHADENOPATHY [None]
